FAERS Safety Report 7813043-2 (Version None)
Quarter: 2011Q4

REPORT INFORMATION
  Report Type: 
  Country: None (occurrence: None)
  Receive Date: 20111013
  Receipt Date: 20111006
  Transmission Date: 20120403
  Serious: Yes (Other)
  Sender: FDA-Public Use
  Company Number: GR-BAXTER-2011BH031616

PATIENT
  Age: 49 Year
  Sex: Male

DRUGS (5)
  1. DEXAMETHASONE [Suspect]
     Indication: MULTIPLE MYELOMA
     Route: 065
  2. IFOSFAMIDE [Suspect]
     Indication: MULTIPLE MYELOMA
     Route: 065
  3. CYCLOPHOSPHAMIDE [Suspect]
     Indication: MULTIPLE MYELOMA
     Route: 065
  4. ETOPOSIDE [Suspect]
     Indication: MULTIPLE MYELOMA
     Route: 065
  5. CISPLATIN [Suspect]
     Indication: MULTIPLE MYELOMA
     Route: 065

REACTIONS (1)
  - MYELODYSPLASTIC SYNDROME [None]
